FAERS Safety Report 5664065-1 (Version None)
Quarter: 2008Q1

REPORT INFORMATION
  Report Type: 
  Country: None (occurrence: None)
  Receive Date: 20080314
  Receipt Date: 20080229
  Transmission Date: 20080703
  Serious: Yes (Other)
  Sender: FDA-Public Use
  Company Number: US-ELI_LILLY_AND_COMPANY-US200803000168

PATIENT
  Sex: Female

DRUGS (2)
  1. FORTEO [Suspect]
     Dates: start: 20070301
  2. COLCHICINE [Concomitant]
     Indication: GOUT

REACTIONS (2)
  - BREAST CANCER [None]
  - BREAST CANCER FEMALE [None]
